FAERS Safety Report 9886196 (Version 3)
Quarter: 2014Q1

REPORT INFORMATION
  Report Type: Spontaneous
  Country: IT (occurrence: IT)
  Receive Date: 20140210
  Receipt Date: 20140304
  Transmission Date: 20141002
  Serious: Yes (Other)
  Sender: FDA-Public Use
  Company Number: IT-TEVA-460108ISR

PATIENT
  Age: 77 Year
  Sex: Female

DRUGS (2)
  1. CISPLATINO [Suspect]
     Indication: LUNG NEOPLASM MALIGNANT
     Dosage: 84 MILLIGRAM DAILY;
     Route: 042
     Dates: start: 20130911
  2. GEMCITABINA [Suspect]
     Indication: LUNG NEOPLASM MALIGNANT
     Dosage: 1400 MILLIGRAM DAILY;
     Route: 042
     Dates: start: 20130911

REACTIONS (1)
  - Constipation [Recovering/Resolving]
